FAERS Safety Report 4833035-5 (Version None)
Quarter: 2005Q4

REPORT INFORMATION
  Report Type: 
  Country: None (occurrence: None)
  Receive Date: 20051121
  Receipt Date: 20051114
  Transmission Date: 20060501
  Serious: Yes (Other)
  Sender: FDA-Public Use
  Company Number: US-BRISTOL-MYERS SQUIBB COMPANY-13179304

PATIENT
  Age: 87 Year
  Sex: Female
  Weight: 56 kg

DRUGS (3)
  1. TEQUIN [Suspect]
     Indication: SINUSITIS
     Route: 048
  2. GLUCOPHAGE [Concomitant]
  3. PRANDIN [Concomitant]

REACTIONS (1)
  - BLOOD GLUCOSE DECREASED [None]
